FAERS Safety Report 10200441 (Version 2)
Quarter: 2014Q2

REPORT INFORMATION
  Report Type: Report from Study
  Country: CN (occurrence: CN)
  Receive Date: 20140528
  Receipt Date: 20140603
  Transmission Date: 20141212
  Serious: Yes (Life-Threatening, Hospitalization)
  Sender: FDA-Public Use
  Company Number: CN-ROCHE-1392311

PATIENT
  Age: 55 Year
  Sex: Female
  Weight: 62 kg

DRUGS (4)
  1. TRASTUZUMAB [Suspect]
     Indication: HER-2 POSITIVE BREAST CANCER
     Dosage: LOADING DOSE
     Route: 042
     Dates: start: 20130501, end: 20130501
  2. TRASTUZUMAB [Suspect]
     Dosage: MAINTAINANCE DOSE: 6 MG/KG, LAST DOSE PRIOR TO SAE-28/APR/2014
     Route: 042
  3. PERTUZUMAB [Suspect]
     Indication: HER-2 POSITIVE BREAST CANCER
     Dosage: LOADING DOSE, LIQUID
     Route: 042
     Dates: start: 20130501, end: 20130501
  4. PERTUZUMAB [Suspect]
     Dosage: LIQUID, MAINTAINACE DOSE, LAST DOSE PRIOR TO SAE-28/APR/2014
     Route: 042

REACTIONS (1)
  - Acute myeloid leukaemia [Not Recovered/Not Resolved]
